FAERS Safety Report 5627495-X (Version None)
Quarter: 2008Q1

REPORT INFORMATION
  Report Type: 
  Country: None (occurrence: None)
  Receive Date: 20080215
  Receipt Date: 20071024
  Transmission Date: 20080703
  Serious: No
  Sender: FDA-Public Use
  Company Number: A0689574A

PATIENT
  Age: 48 Year
  Sex: Male

DRUGS (7)
  1. COREG CR [Suspect]
     Indication: HYPERTENSION
     Dosage: 80MG PER DAY
     Route: 048
     Dates: start: 20071009, end: 20071012
  2. LABETALOL HCL [Concomitant]
  3. MICARDIS [Concomitant]
  4. ATIVAN [Concomitant]
  5. LOTREL [Concomitant]
  6. ASPIRIN [Concomitant]
  7. PREVACID [Concomitant]

REACTIONS (3)
  - FATIGUE [None]
  - SOMNOLENCE [None]
  - TREMOR [None]
